FAERS Safety Report 9835850 (Version 1)
Quarter: 2014Q1

REPORT INFORMATION
  Report Type: Report from Study
  Country: US (occurrence: US)
  Receive Date: 20140122
  Receipt Date: 20140122
  Transmission Date: 20141002
  Serious: Yes (Death, Hospitalization, Other)
  Sender: FDA-Public Use
  Company Number: US-US-EMD SERONO, INC.-7263949

PATIENT
  Sex: Male

DRUGS (1)
  1. REBIF [Suspect]
     Indication: PRODUCT USED FOR UNKNOWN INDICATION
     Route: 058
     Dates: start: 20050808

REACTIONS (5)
  - Diabetes mellitus [Unknown]
  - Malaise [Unknown]
  - Malignant melanoma [Fatal]
  - Metastasis [Fatal]
  - Convulsion [Unknown]
